FAERS Safety Report 4510697-3 (Version None)
Quarter: 2004Q4

REPORT INFORMATION
  Report Type: 
  Country: None (occurrence: None)
  Receive Date: 20041122
  Receipt Date: 20041108
  Transmission Date: 20050328
  Serious: Yes (Other)
  Sender: FDA-Public Use
  Company Number: 2004240719GB

PATIENT
  Age: 72 Year
  Sex: Male
  Weight: 101.8325 kg

DRUGS (6)
  1. SOMATROPIN (SOMATROPIN) [Suspect]
     Indication: HYPOPITUITARISM
     Dosage: 3 MG (DAILY), SUBCUTANEOUS
     Route: 058
     Dates: start: 19971001, end: 20041020
  2. TESTOSTERONE [Suspect]
     Indication: HORMONE REPLACEMENT THERAPY
     Dates: end: 20040726
  3. HYDROCORTISONE [Concomitant]
  4. LEVOTHYROXINE SODIUM [Concomitant]
  5. ATENOLOL [Concomitant]
  6. ALFUZOSIN (ALFUZOSIN) [Concomitant]

REACTIONS (1)
  - PROSTATE CANCER [None]
